FAERS Safety Report 10503100 (Version 2)
Quarter: 2014Q4

REPORT INFORMATION
  Report Type: Report from Study
  Country: CA (occurrence: CA)
  Receive Date: 20141007
  Receipt Date: 20141007
  Transmission Date: 20150528
  Serious: Yes (Other)
  Sender: FDA-Public Use
  Company Number: PHHY2014CA128795

PATIENT
  Age: 46 Year
  Sex: Male

DRUGS (5)
  1. EFFEXOR - SLOW RELEASE [Concomitant]
     Route: 065
  2. CLOZARIL [Suspect]
     Active Substance: CLOZAPINE
     Indication: SCHIZOAFFECTIVE DISORDER
     Dosage: 400 UKN, QHS
     Route: 048
     Dates: start: 20011003, end: 20140812
  3. FERROUS GLUCONATE [Concomitant]
     Active Substance: FERROUS GLUCONATE
     Route: 065
  4. ZOPLICONE [Concomitant]
     Active Substance: ZOPICLONE
     Route: 065
  5. ATIVAN [Concomitant]
     Active Substance: LORAZEPAM
     Route: 065

REACTIONS (3)
  - Agranulocytosis [Unknown]
  - Neutropenia [Unknown]
  - Anaemia [Unknown]

NARRATIVE: CASE EVENT DATE: 20140914
